FAERS Safety Report 12338642 (Version 1)
Quarter: 2016Q2

REPORT INFORMATION
  Report Type: Spontaneous
  Country: US (occurrence: US)
  Receive Date: 20160505
  Receipt Date: 20160505
  Transmission Date: 20160815
  Serious: No
  Sender: FDA-Public Use
  Company Number: US-GLAXOSMITHKLINE-US2016GSK058404

PATIENT
  Age: 49 Year
  Sex: Female

DRUGS (1)
  1. TANZEUM [Suspect]
     Active Substance: ALBIGLUTIDE
     Indication: WEIGHT CONTROL
     Dosage: 50 MG, WE
     Dates: start: 201603

REACTIONS (5)
  - Device leakage [Unknown]
  - Device use error [Unknown]
  - Product use issue [Unknown]
  - Device issue [Unknown]
  - Product preparation error [Unknown]

NARRATIVE: CASE EVENT DATE: 20160423
